FAERS Safety Report 10330702 (Version 1)
Quarter: 2014Q3

REPORT INFORMATION
  Report Type: Spontaneous
  Country: US (occurrence: None)
  Receive Date: 20140718
  Receipt Date: 20140718
  Transmission Date: 20150326
  Serious: Yes (Disabling)
  Sender: FDA-Public Use
  Company Number: None

PATIENT
  Age: 55 Year
  Sex: Female
  Weight: 72.58 kg

DRUGS (1)
  1. LEVOFLOXACIN [Suspect]
     Active Substance: LEVOFLOXACIN
     Indication: PNEUMONIA
     Route: 048
     Dates: start: 20140615, end: 20140621

REACTIONS (6)
  - Pain [None]
  - Panic attack [None]
  - Tendonitis [None]
  - Bedridden [None]
  - Asthenia [None]
  - Tendon pain [None]

NARRATIVE: CASE EVENT DATE: 20140615
